FAERS Safety Report 20876811 (Version 1)
Quarter: 2022Q2

REPORT INFORMATION
  Report Type: Report from Study
  Country: JP (occurrence: JP)
  Receive Date: 20220526
  Receipt Date: 20220526
  Transmission Date: 20220721
  Serious: Yes (Death, Hospitalization, Other)
  Sender: FDA-Public Use
  Company Number: JP-ROCHE-3101575

PATIENT
  Age: 70 Year
  Sex: Female
  Weight: 59 kg

DRUGS (7)
  1. TRASTUZUMAB [Suspect]
     Active Substance: TRASTUZUMAB
     Indication: Breast cancer
     Dosage: MOST RECENT DOSE OF TRASTUZUMAB ON 28/FEB/2022
     Route: 041
     Dates: start: 20220207
  2. PERTUZUMAB [Suspect]
     Active Substance: PERTUZUMAB
     Indication: Breast cancer
     Dosage: MOST RECENT DOSE OF PERTUZUMAB: 28/FEB/2022
     Route: 041
     Dates: start: 20220207
  3. DOCETAXEL [Suspect]
     Active Substance: DOCETAXEL
     Indication: Breast cancer
     Dosage: MOST RECENT DOSE OF DOCETAXEL: 28/FEB/2022
     Route: 041
     Dates: start: 20220207
  4. METFORMIN HYDROCHLORIDE [Concomitant]
     Active Substance: METFORMIN HYDROCHLORIDE
  5. EMPAGLIFLOZIN\LINAGLIPTIN [Concomitant]
     Active Substance: EMPAGLIFLOZIN\LINAGLIPTIN
     Route: 065
  6. PIOGLITAZONE HYDROCHLORIDE [Concomitant]
     Active Substance: PIOGLITAZONE HYDROCHLORIDE
     Route: 065
  7. EDOXABAN TOSYLATE [Concomitant]
     Active Substance: EDOXABAN TOSYLATE
     Route: 065

REACTIONS (5)
  - Acute respiratory distress syndrome [Fatal]
  - Disseminated intravascular coagulation [Not Recovered/Not Resolved]
  - Diabetic ketoacidosis [Unknown]
  - Sepsis [Unknown]
  - Anaemia [Unknown]

NARRATIVE: CASE EVENT DATE: 20220301
